FAERS Safety Report 7121797-6 (Version None)
Quarter: 2010Q4

REPORT INFORMATION
  Report Type: 
  Country: None (occurrence: None)
  Receive Date: 20101124
  Receipt Date: 20101108
  Transmission Date: 20110411
  Serious: Yes (Other)
  Sender: FDA-Public Use
  Company Number: US-AMGEN INC.-US340487

PATIENT
  Sex: Male
  Weight: 88.5 kg

DRUGS (9)
  1. NPLATE [Suspect]
     Indication: IDIOPATHIC THROMBOCYTOPENIC PURPURA
     Dosage: 250 A?G, QWK
     Route: 058
     Dates: start: 20090216, end: 20090323
  2. NPLATE [Suspect]
     Dosage: 250 A?G/KG, UNK
  3. NPLATE [Suspect]
     Dates: start: 20090216, end: 20090402
  4. PREDNISONE [Concomitant]
     Dosage: UNK UNK, UNK
     Route: 065
     Dates: start: 20090202, end: 20090323
  5. RITUXIMAB [Concomitant]
     Dosage: UNK UNK, UNK
     Route: 065
     Dates: start: 20090128
  6. CORTICOSTEROID NOS [Concomitant]
     Dosage: UNK UNK, UNK
     Dates: start: 20090108
  7. WINRHO [Concomitant]
     Dosage: UNK
  8. WINRHO [Concomitant]
     Dosage: UNK
     Dates: start: 20090109, end: 20090109
  9. WINRHO [Concomitant]
     Dosage: UNK
     Dates: start: 20090122, end: 20090122

REACTIONS (3)
  - THERAPEUTIC RESPONSE DECREASED [None]
  - URTICARIA [None]
  - WHITE BLOOD CELL COUNT INCREASED [None]
